FAERS Safety Report 17196801 (Version 2)
Quarter: 2020Q1

REPORT INFORMATION
  Report Type: Report from Study
  Country: DE (occurrence: DE)
  Receive Date: 20191224
  Receipt Date: 20200304
  Transmission Date: 20200409
  Serious: Yes (Hospitalization)
  Sender: FDA-Public Use
  Company Number: DE-SECURA BIO, INC.-2019DE012189

PATIENT

DRUGS (2)
  1. PANOBINOSTAT [Suspect]
     Active Substance: PANOBINOSTAT
     Indication: ACUTE MYELOID LEUKAEMIA
  2. PANOBINOSTAT [Suspect]
     Active Substance: PANOBINOSTAT
     Indication: MYELODYSPLASTIC SYNDROME
     Dosage: 20 MG
     Route: 048
     Dates: start: 20191030

REACTIONS (1)
  - Diarrhoea [Recovered/Resolved]

NARRATIVE: CASE EVENT DATE: 20191119
